FAERS Safety Report 6877715-9 (Version None)
Quarter: 2010Q3

REPORT INFORMATION
  Report Type: 
  Country: None (occurrence: None)
  Receive Date: 20100727
  Receipt Date: 20100609
  Transmission Date: 20110219
  Serious: No
  Sender: FDA-Public Use
  Company Number: US-ABBOTT-10P-163-0651611-00

PATIENT
  Age: 82 Year
  Sex: Female
  Weight: 56.75 kg

DRUGS (4)
  1. SYNTHROID [Suspect]
     Indication: HYPOTHYROIDISM
     Dosage: UNKNOWN HIGHER DOSAGE EVERY MORNING
     Route: 048
     Dates: start: 19750101
  2. SYNTHROID [Suspect]
     Dosage: EVERY MORNING AT 8 OR 8:30
     Route: 048
  3. PROPRANOLOL [Concomitant]
     Indication: ESSENTIAL TREMOR
     Route: 048
  4. MULTI-VITAMIN [Concomitant]
     Indication: PRODUCT USED FOR UNKNOWN INDICATION
     Dosage: AFTER LUNCH
     Route: 048

REACTIONS (2)
  - HYPERTHYROIDISM [None]
  - SOMNOLENCE [None]
